FAERS Safety Report 8198365-0 (Version None)
Quarter: 2012Q1

REPORT INFORMATION
  Report Type: 
  Country: None (occurrence: None)
  Receive Date: 20120309
  Receipt Date: 20120305
  Transmission Date: 20120608
  Serious: Yes (Death, Other)
  Sender: FDA-Public Use
  Company Number: PHHO2010CZ01456

PATIENT
  Sex: Female
  Weight: 56 kg

DRUGS (2)
  1. AFINITOR [Suspect]
     Indication: METASTATIC RENAL CELL CARCINOMA
     Dosage: 10 MG, DAILY
     Route: 048
     Dates: start: 20090415
  2. AVASTIN [Suspect]
     Indication: METASTATIC RENAL CELL CARCINOMA
     Dosage: 580 MG
     Route: 048
     Dates: start: 20090415, end: 20100120

REACTIONS (6)
  - SUDDEN DEATH [None]
  - RESPIRATORY ARREST [None]
  - SYNCOPE [None]
  - DIZZINESS [None]
  - PULMONARY EMBOLISM [None]
  - FALL [None]
